FAERS Safety Report 17262795 (Version 1)
Quarter: 2020Q1

REPORT INFORMATION
  Report Type: Spontaneous
  Country: NL (occurrence: NL)
  Receive Date: 20200113
  Receipt Date: 20200113
  Transmission Date: 20200409
  Serious: Yes (Hospitalization)
  Sender: FDA-Public Use
  Company Number: NL-TEVA-2020-NL-1167098

PATIENT
  Sex: Male
  Weight: 100 kg

DRUGS (7)
  1. CALCIUMCARBONAAT [Concomitant]
     Dosage: 1.25 G
  2. SEVELAMEER [Concomitant]
     Dosage: 800 MG
  3. MOVICOLON (MACROGOL/ZOUTEN) [Concomitant]
     Dosage: 1 DF
  4. TAMSULOSINE [Suspect]
     Active Substance: TAMSULOSIN HYDROCHLORIDE
     Indication: MICTURITION DISORDER
     Dosage: CAPSULE MET GEREGULEERDE AFGIFTE, 0,4 MG (MILLIGRAM), 1 KEER PER DAG, 1
     Dates: start: 20191203, end: 20191210
  5. DUTASTERIDE. [Concomitant]
     Active Substance: DUTASTERIDE
     Dosage: 0,5 MG
  6. ALFACALCIDOL [Concomitant]
     Active Substance: ALFACALCIDOL
     Dosage: 0.25 MICROGRAM
  7. NATRIUMWATERSTOFCARBONAAT [Concomitant]
     Dosage: 500 MG

REACTIONS (1)
  - Orthostatic hypotension [Recovered/Resolved]
